FAERS Safety Report 5599915-0 (Version None)
Quarter: 2008Q1

REPORT INFORMATION
  Report Type: 
  Country: None (occurrence: None)
  Receive Date: 20080123
  Receipt Date: 20080114
  Transmission Date: 20080703
  Serious: Yes (Other)
  Sender: FDA-Public Use
  Company Number: US-JNJFOC-20080103239

PATIENT
  Age: 66 Year
  Sex: Female
  Weight: 63.5 kg

DRUGS (5)
  1. DIPHENHYDRAMINE HYDROCHLORIDE 25MG CAP [Suspect]
  2. DIPHENHYDRAMINE HYDROCHLORIDE 25MG CAP [Suspect]
     Indication: INSOMNIA
  3. ETHANOL [Suspect]
     Indication: DRUG USE FOR UNKNOWN INDICATION
  4. XANAX [Concomitant]
     Indication: ANXIETY
  5. EFFEXOR [Concomitant]
     Indication: DEPRESSION

REACTIONS (8)
  - BLINDNESS [None]
  - CONTRAINDICATION TO MEDICAL TREATMENT [None]
  - DISORIENTATION [None]
  - DIZZINESS [None]
  - DRUG INEFFECTIVE [None]
  - FEELING ABNORMAL [None]
  - OVERDOSE [None]
  - SPEECH DISORDER [None]
